FAERS Safety Report 7085588-7 (Version None)
Quarter: 2010Q4

REPORT INFORMATION
  Report Type: 
  Country: None (occurrence: None)
  Receive Date: 20101105
  Receipt Date: 20101028
  Transmission Date: 20110411
  Serious: Yes (Other)
  Sender: FDA-Public Use
  Company Number: US-GENZYME-THYM-1002019

PATIENT
  Age: 43 Year
  Sex: Male

DRUGS (5)
  1. THYMOGLOBULIN [Suspect]
     Indication: PROPHYLAXIS AGAINST TRANSPLANT REJECTION
     Dosage: 1.5 MG/KG, QD
     Route: 042
     Dates: start: 20080401, end: 20080401
  2. ZENAPAX [Concomitant]
     Indication: PROPHYLAXIS AGAINST TRANSPLANT REJECTION
     Dosage: 1 MG/KG, ONCE
     Route: 065
     Dates: start: 20080401, end: 20080401
  3. ZENAPAX [Concomitant]
     Dosage: 1 MG/KG, ONCE, 14 DAYS AFTER TRANSPLANT
     Route: 065
  4. TACROLIMUS [Concomitant]
     Indication: PROPHYLAXIS AGAINST TRANSPLANT REJECTION
     Dosage: UNK
     Route: 065
  5. MYCOPHENOLATE MOFETIL [Concomitant]
     Indication: PROPHYLAXIS AGAINST TRANSPLANT REJECTION
     Dosage: UNK
     Route: 065

REACTIONS (1)
  - GLOMERULONEPHRITIS MEMBRANOUS [None]
